FAERS Safety Report 11362317 (Version 1)
Quarter: 2015Q3

REPORT INFORMATION
  Report Type: Spontaneous
  Country: US (occurrence: US)
  Receive Date: 20150810
  Receipt Date: 20150810
  Transmission Date: 20151125
  Serious: Yes (Hospitalization, Congenital Anomaly, Other)
  Sender: FDA-Public Use
  Company Number: US-PFIZER INC-2015259688

PATIENT
  Sex: Female
  Weight: 2 kg

DRUGS (2)
  1. ZOLOFT [Suspect]
     Active Substance: SERTRALINE HYDROCHLORIDE
     Dosage: UNK
     Route: 064
  2. PRENATAL VITAMINS [Concomitant]
     Active Substance: VITAMINS
     Dosage: UNK
     Route: 064

REACTIONS (10)
  - Anaemia neonatal [Unknown]
  - Periventricular leukomalacia [Unknown]
  - Maternal exposure during pregnancy [Unknown]
  - Apnoea neonatal [Unknown]
  - Cerebral cyst [Unknown]
  - Cerebral palsy [Unknown]
  - Atrial septal defect [Unknown]
  - Premature baby [Unknown]
  - Patent ductus arteriosus [Unknown]
  - Neonatal respiratory distress syndrome [Unknown]

NARRATIVE: CASE EVENT DATE: 20111212
